FAERS Safety Report 9705947 (Version 2)
Quarter: 2014Q1

REPORT INFORMATION
  Report Type: Spontaneous
  Country: US (occurrence: US)
  Receive Date: 20131122
  Receipt Date: 20140113
  Transmission Date: 20141002
  Serious: Yes (Other)
  Sender: FDA-Public Use
  Company Number: US-GLAXOSMITHKLINE-A0841012A

PATIENT
  Age: 78 Year
  Sex: Female
  Weight: 75 kg

DRUGS (8)
  1. ADVAIR [Suspect]
     Indication: CHRONIC OBSTRUCTIVE PULMONARY DISEASE
     Dosage: 1PUFF TWICE PER DAY
     Route: 055
     Dates: start: 200807
  2. CRESTOR [Concomitant]
     Dosage: 10MG PER DAY
     Route: 048
  3. HCTZ [Concomitant]
     Dosage: 50MG PER DAY
     Route: 048
  4. ATENOLOL [Concomitant]
     Dosage: 50MG PER DAY
  5. MULTIVITAMIN [Concomitant]
  6. CALCIUM [Concomitant]
  7. VITAMIN [Concomitant]
  8. CITALOPRAM HYDROBROMIDE [Concomitant]
     Dosage: 20MG PER DAY
     Route: 048

REACTIONS (13)
  - Neoplasm malignant [Unknown]
  - Weight increased [Recovering/Resolving]
  - Dysphonia [Recovering/Resolving]
  - Pain [Recovering/Resolving]
  - Hypoaesthesia [Recovering/Resolving]
  - Gait disturbance [Recovering/Resolving]
  - Arthritis [Recovering/Resolving]
  - Vaginal discharge [Recovering/Resolving]
  - Vaginal odour [Recovering/Resolving]
  - Tongue discolouration [Recovering/Resolving]
  - Surgery [Unknown]
  - Axillary mass [Unknown]
  - Breast cancer [Unknown]
